FAERS Safety Report 21935984 (Version 3)
Quarter: 2023Q1

REPORT INFORMATION
  Report Type: Spontaneous
  Country: GR (occurrence: GR)
  Receive Date: 20230201
  Receipt Date: 20230215
  Transmission Date: 20230417
  Serious: Yes (Hospitalization, Other)
  Sender: FDA-Public Use
  Company Number: GR-CELLTRION INC.-2023GR001965

PATIENT

DRUGS (3)
  1. RITUXIMAB [Suspect]
     Active Substance: RITUXIMAB
     Indication: Multiple sclerosis
     Dosage: INFUSIONS OF 700 MG, ONCE EVERY 6 MONTHS
     Route: 042
  2. MIRTAZAPINE [Concomitant]
     Active Substance: MIRTAZAPINE
  3. VITAMIN D [Concomitant]
     Active Substance: VITAMIN D NOS
     Indication: Vitamin supplementation

REACTIONS (3)
  - COVID-19 [Unknown]
  - Vaccination failure [Recovered/Resolved]
  - Off label use [Unknown]
